FAERS Safety Report 10354674 (Version 1)
Quarter: 2014Q3

REPORT INFORMATION
  Report Type: Spontaneous
  Country: US (occurrence: None)
  Receive Date: 20140729
  Receipt Date: 20140729
  Transmission Date: 20150326
  Serious: Yes (Disabling, Other)
  Sender: FDA-Public Use
  Company Number: None

PATIENT
  Age: 46 Year
  Sex: Female
  Weight: 81.65 kg

DRUGS (2)
  1. LEVAQUIN [Suspect]
     Active Substance: LEVOFLOXACIN
     Indication: UPPER RESPIRATORY TRACT INFECTION
     Route: 048
  2. LEVAQUIN [Suspect]
     Active Substance: LEVOFLOXACIN
     Indication: SINUSITIS
     Route: 048

REACTIONS (12)
  - Pain [None]
  - Tendonitis [None]
  - Tremor [None]
  - Hypersomnia [None]
  - Tendon rupture [None]
  - Hyperhidrosis [None]
  - Hypoaesthesia [None]
  - Fatigue [None]
  - Abdominal pain upper [None]
  - Heart rate increased [None]
  - Asthenia [None]
  - Dizziness [None]
